FAERS Safety Report 8798706 (Version 1)
Quarter: 2012Q4

REPORT INFORMATION
  Report Type: Spontaneous
  Country: US (occurrence: None)
  Receive Date: 20120917
  Receipt Date: 20120917
  Transmission Date: 20130627
  Serious: Yes (Disabling)
  Sender: FDA-Public Use
  Company Number: None

PATIENT
  Age: 44 Year
  Sex: Female
  Weight: 70.31 kg

DRUGS (1)
  1. FLOVENT HFA [Suspect]
     Indication: ASTHMA
     Dosage: TWO PUFFS TWICE DAILY PO
     Route: 048
     Dates: start: 20120101, end: 20120916

REACTIONS (2)
  - Temporomandibular joint syndrome [None]
  - No therapeutic response [None]
